FAERS Safety Report 4500577-1 (Version None)
Quarter: 2004Q4

REPORT INFORMATION
  Report Type: 
  Country: None (occurrence: None)
  Receive Date: 20041115
  Receipt Date: 20041103
  Transmission Date: 20050328
  Serious: Yes (Death)
  Sender: FDA-Public Use
  Company Number: AU-ABBOTT-04P-008-0279652-00

PATIENT
  Sex: Male

DRUGS (1)
  1. VALPROIC ACID [Suspect]
     Indication: EPILEPSY

REACTIONS (3)
  - CARDIAC ARREST [None]
  - DEPRESSION [None]
  - EPILEPSY [None]
